FAERS Safety Report 7275203-1 (Version None)
Quarter: 2011Q1

REPORT INFORMATION
  Report Type: 
  Country: None (occurrence: None)
  Receive Date: 20110204
  Receipt Date: 20110125
  Transmission Date: 20110831
  Serious: Yes (Hospitalization, Other)
  Sender: FDA-Public Use
  Company Number: PHHY2011US05174

PATIENT
  Sex: Male

DRUGS (1)
  1. GLEEVEC [Suspect]
     Indication: CHRONIC MYELOID LEUKAEMIA
     Dosage: 400 MG, DAILY
     Route: 048
     Dates: start: 20110106

REACTIONS (6)
  - FALL [None]
  - HYPOTENSION [None]
  - THROMBOCYTOPENIA [None]
  - WEIGHT DECREASED [None]
  - SYNCOPE [None]
  - EAR INJURY [None]
